FAERS Safety Report 4338100-7 (Version None)
Quarter: 2004Q2

REPORT INFORMATION
  Report Type: 
  Country: None (occurrence: None)
  Receive Date: 20040407
  Receipt Date: 20040323
  Transmission Date: 20050107
  Serious: Yes (Hospitalization)
  Sender: FDA-Public Use
  Company Number: 205598

PATIENT
  Age: 67 Year
  Sex: Male

DRUGS (3)
  1. HERCEPTIN [Suspect]
     Indication: BREAST CANCER
     Dosage: 560 MG, SINGLE, INTRAVENOUS
     Route: 042
     Dates: start: 20040217, end: 20040217
  2. TAXOTERE [Suspect]
     Indication: BREAST CANCER
     Dosage: 169.3 MG, Q3W, INTRAVENOUS
     Route: 042
     Dates: start: 20040217
  3. OMEPRAZOLE [Concomitant]

REACTIONS (1)
  - FEBRILE NEUTROPENIA [None]
